FAERS Safety Report 21366146 (Version 2)
Quarter: 2022Q4

REPORT INFORMATION
  Report Type: Spontaneous
  Country: DE (occurrence: None)
  Receive Date: 20220922
  Receipt Date: 20221012
  Transmission Date: 20230112
  Serious: Yes (Congenital Anomaly, Other)
  Sender: FDA-Public Use
  Company Number: 2022A318119

PATIENT
  Sex: Male
  Weight: 3.4 kg

DRUGS (4)
  1. SYMBICORT [Suspect]
     Active Substance: BUDESONIDE\FORMOTEROL FUMARATE DIHYDRATE
     Indication: Asthma
     Dosage: DOSE AND FREQUENCY UNKNOWN UNKNOWN
     Route: 064
     Dates: start: 20210530, end: 20220318
  2. ACETAMINOPHEN [Concomitant]
     Active Substance: ACETAMINOPHEN
     Indication: COVID-19
     Route: 064
  3. COMIRNATY [Concomitant]
     Active Substance: TOZINAMERAN
     Indication: COVID-19 immunisation
     Route: 064
     Dates: start: 20220104, end: 20220104
  4. COMIRNATY [Concomitant]
     Active Substance: TOZINAMERAN
     Indication: COVID-19 immunisation
     Route: 064
     Dates: start: 20211210, end: 20211210

REACTIONS (7)
  - Cardiomyopathy neonatal [Unknown]
  - Atrial septal defect [Unknown]
  - Cardiac failure [Recovered/Resolved]
  - Cardiac aneurysm [Unknown]
  - Congenital tricuspid valve incompetence [Unknown]
  - Foetal exposure during pregnancy [Unknown]
  - Pulmonary valve stenosis [Unknown]
